FAERS Safety Report 21832379 (Version 1)
Quarter: 2023Q1

REPORT INFORMATION
  Report Type: Spontaneous
  Country: US (occurrence: US)
  Receive Date: 20230106
  Receipt Date: 20230106
  Transmission Date: 20230417
  Serious: No
  Sender: FDA-Public Use
  Company Number: US-ALLERGAN-2230876US

PATIENT
  Age: 44 Year
  Sex: Female

DRUGS (1)
  1. QULIPTA [Suspect]
     Active Substance: ATOGEPANT
     Indication: Product used for unknown indication
     Dosage: 60 MG, QD
     Route: 048
     Dates: start: 20221010, end: 20221010

REACTIONS (3)
  - Migraine with aura [Recovered/Resolved]
  - Gastrointestinal disorder [Unknown]
  - Migraine [Unknown]

NARRATIVE: CASE EVENT DATE: 20221001
